FAERS Safety Report 6402937-0 (Version None)
Quarter: 2009Q4

REPORT INFORMATION
  Report Type: 
  Country: None (occurrence: None)
  Receive Date: 20091016
  Receipt Date: 20091007
  Transmission Date: 20100525
  Serious: Yes (Other)
  Sender: FDA-Public Use
  Company Number: US-BAXTER-2009BH014010

PATIENT
  Age: 37 Year
  Sex: Female

DRUGS (48)
  1. GAMMAGARD LIQUID [Suspect]
     Indication: DEMYELINATING POLYNEUROPATHY
     Route: 042
     Dates: start: 20090801, end: 20090801
  2. GAMMAGARD LIQUID [Suspect]
     Route: 042
     Dates: start: 20080601, end: 20080601
  3. GAMMAGARD LIQUID [Suspect]
     Route: 042
     Dates: start: 20090701, end: 20090701
  4. GAMMAGARD LIQUID [Suspect]
     Route: 042
     Dates: start: 20081201, end: 20081201
  5. GAMMAGARD LIQUID [Suspect]
     Route: 042
     Dates: start: 20090701, end: 20090701
  6. GAMMAGARD LIQUID [Suspect]
     Route: 042
     Dates: start: 20081201, end: 20081201
  7. GAMMAGARD LIQUID [Suspect]
     Route: 042
     Dates: start: 20081201, end: 20081201
  8. GAMMAGARD LIQUID [Suspect]
     Route: 042
     Dates: start: 20090701, end: 20090701
  9. GAMMAGARD LIQUID [Suspect]
     Route: 042
     Dates: start: 20081201, end: 20081201
  10. GAMMAGARD LIQUID [Suspect]
     Route: 042
     Dates: start: 20090701, end: 20090701
  11. GAMMAGARD LIQUID [Suspect]
     Route: 042
     Dates: start: 20081201, end: 20081201
  12. GAMMAGARD LIQUID [Suspect]
     Route: 042
     Dates: start: 20090701, end: 20090701
  13. GAMMAGARD LIQUID [Suspect]
     Route: 042
     Dates: start: 20081101, end: 20081101
  14. GAMMAGARD LIQUID [Suspect]
     Route: 042
     Dates: start: 20090601, end: 20090601
  15. GAMMAGARD LIQUID [Suspect]
     Route: 042
     Dates: start: 20081101, end: 20081101
  16. GAMMAGARD LIQUID [Suspect]
     Route: 042
     Dates: start: 20090601, end: 20090601
  17. GAMMAGARD LIQUID [Suspect]
     Route: 042
     Dates: start: 20081101, end: 20081101
  18. GAMMAGARD LIQUID [Suspect]
     Route: 042
     Dates: start: 20090601, end: 20090601
  19. GAMMAGARD LIQUID [Suspect]
     Route: 042
     Dates: start: 20081001, end: 20081001
  20. GAMMAGARD LIQUID [Suspect]
     Route: 042
     Dates: start: 20090601, end: 20090601
  21. GAMMAGARD LIQUID [Suspect]
     Route: 042
     Dates: start: 20081001, end: 20081001
  22. GAMMAGARD LIQUID [Suspect]
     Route: 042
     Dates: start: 20090501, end: 20090501
  23. GAMMAGARD LIQUID [Suspect]
     Route: 042
     Dates: start: 20081001, end: 20081001
  24. GAMMAGARD LIQUID [Suspect]
     Route: 042
     Dates: start: 20090501, end: 20090501
  25. GAMMAGARD LIQUID [Suspect]
     Route: 042
     Dates: start: 20081001, end: 20081001
  26. GAMMAGARD LIQUID [Suspect]
     Route: 042
     Dates: start: 20090501, end: 20090501
  27. GAMMAGARD LIQUID [Suspect]
     Route: 042
     Dates: start: 20090501, end: 20090501
  28. GAMMAGARD LIQUID [Suspect]
     Route: 042
     Dates: start: 20090401, end: 20090401
  29. GAMMAGARD LIQUID [Suspect]
     Route: 042
     Dates: start: 20090401, end: 20090401
  30. GAMMAGARD LIQUID [Suspect]
     Route: 042
     Dates: start: 20090401, end: 20090401
  31. GAMMAGARD LIQUID [Suspect]
     Route: 042
     Dates: start: 20090401, end: 20090401
  32. GAMMAGARD LIQUID [Suspect]
     Route: 042
     Dates: start: 20090401, end: 20090401
  33. GAMMAGARD LIQUID [Suspect]
     Route: 042
     Dates: start: 20090401, end: 20090401
  34. GAMMAGARD LIQUID [Suspect]
     Route: 042
     Dates: start: 20090401, end: 20090401
  35. GAMMAGARD LIQUID [Suspect]
     Route: 042
     Dates: start: 20090301, end: 20090301
  36. GAMMAGARD LIQUID [Suspect]
     Route: 042
     Dates: start: 20090301, end: 20090301
  37. GAMMAGARD LIQUID [Suspect]
     Route: 042
     Dates: start: 20090301, end: 20090301
  38. GAMMAGARD LIQUID [Suspect]
     Route: 042
     Dates: start: 20090301, end: 20090301
  39. GAMMAGARD LIQUID [Suspect]
     Route: 042
     Dates: start: 20090201, end: 20090201
  40. GAMMAGARD LIQUID [Suspect]
     Route: 042
     Dates: start: 20090201, end: 20090201
  41. GAMMAGARD LIQUID [Suspect]
     Route: 042
     Dates: start: 20090201, end: 20090201
  42. GAMMAGARD LIQUID [Suspect]
     Route: 042
     Dates: start: 20090201, end: 20090201
  43. GAMMAGARD LIQUID [Suspect]
     Route: 042
     Dates: start: 20090201, end: 20090201
  44. GAMMAGARD LIQUID [Suspect]
     Route: 042
     Dates: start: 20090101, end: 20090101
  45. GAMMAGARD LIQUID [Suspect]
     Route: 042
     Dates: start: 20090101, end: 20090101
  46. GAMMAGARD LIQUID [Suspect]
     Route: 042
     Dates: start: 20070101
  47. VITAMIN TAB [Concomitant]
  48. ASPIRIN [Concomitant]
     Route: 048

REACTIONS (2)
  - DRUG EXPOSURE DURING PREGNANCY [None]
  - HEPATITIS B ANTIBODY POSITIVE [None]
